FAERS Safety Report 10696204 (Version 1)
Quarter: 2015Q1

REPORT INFORMATION
  Report Type: Spontaneous
  Country: US (occurrence: None)
  Receive Date: 20150106
  Receipt Date: 20150106
  Transmission Date: 20150721
  Serious: No
  Sender: FDA-Public Use
  Company Number: None

PATIENT
  Age: 53 Year
  Sex: Female
  Weight: 54.43 kg

DRUGS (1)
  1. CHANTIX [Suspect]
     Active Substance: VARENICLINE TARTRATE
     Indication: SMOKING CESSATION THERAPY
     Dosage: 1
     Route: 048
     Dates: start: 20140313, end: 20140513

REACTIONS (10)
  - Anxiety [None]
  - Deafness [None]
  - Hostility [None]
  - Abnormal dreams [None]
  - Alopecia [None]
  - Parosmia [None]
  - Headache [None]
  - Agitation [None]
  - Muscle spasms [None]
  - Panic reaction [None]

NARRATIVE: CASE EVENT DATE: 20140301
